FAERS Safety Report 4731962-0 (Version None)
Quarter: 2005Q3

REPORT INFORMATION
  Report Type: 
  Country: None (occurrence: None)
  Receive Date: 20050725
  Receipt Date: 20041108
  Transmission Date: 20060218
  Serious: Yes (Life-Threatening)
  Sender: FDA-Public Use
  Company Number: WAES 0411USA01431

PATIENT
  Age: 87 Year
  Sex: Female

DRUGS (3)
  1. VIOXX [Suspect]
     Indication: ARTHRITIS
     Dosage: PO
     Route: 048
     Dates: start: 20040101, end: 20040213
  2. NEXIUM [Concomitant]
  3. PRINIVIL [Concomitant]

REACTIONS (2)
  - BLOOD PRESSURE INCREASED [None]
  - HALLUCINATION [None]
